FAERS Safety Report 12009417 (Version 2)
Quarter: 2017Q4

REPORT INFORMATION
  Report Type: Spontaneous
  Country: FR (occurrence: FR)
  Receive Date: 20160205
  Receipt Date: 20171109
  Transmission Date: 20180320
  Serious: Yes (Hospitalization)
  Sender: FDA-Public Use
  Company Number: FR-MERCK KGAA-1047356

PATIENT
  Age: 52 Year
  Sex: Male

DRUGS (6)
  1. ALFENTANIL. [Suspect]
     Active Substance: ALFENTANIL
     Route: 042
     Dates: start: 20151228, end: 20151228
  2. NOVOTHYROX [Suspect]
     Active Substance: LEVOTHYROXINE SODIUM
     Indication: HYPOTHYROIDISM
     Route: 048
  3. KETAMINE [Suspect]
     Active Substance: KETAMINE
     Dates: start: 20151228, end: 20151228
  4. DEXAMETHASONE. [Suspect]
     Active Substance: DEXAMETHASONE
     Route: 048
     Dates: start: 20151228, end: 20151228
  5. PROPOFOL. [Suspect]
     Active Substance: PROPOFOL
     Route: 042
     Dates: start: 20151228, end: 20151228
  6. SEVOFLURANE. [Suspect]
     Active Substance: SEVOFLURANE
     Route: 055
     Dates: start: 20151228, end: 20151228

REACTIONS (2)
  - Quadriplegia [Recovered/Resolved]
  - Hypokalaemia [Recovered/Resolved]

NARRATIVE: CASE EVENT DATE: 20151228
